FAERS Safety Report 9934910 (Version 1)
Quarter: 2014Q1

REPORT INFORMATION
  Report Type: Spontaneous
  Country: US (occurrence: US)
  Receive Date: 20140228
  Receipt Date: 20140228
  Transmission Date: 20141002
  Serious: No
  Sender: FDA-Public Use
  Company Number: US-ASTRAZENECA-2013SE78641

PATIENT
  Sex: Female

DRUGS (9)
  1. TOPROL-XL [Suspect]
     Indication: HYPERTENSION
     Dosage: WATSON
     Route: 048
     Dates: start: 201107
  2. TOPROL-XL [Suspect]
     Indication: BLOOD PRESSURE ABNORMAL
     Dosage: WATSON
     Route: 048
     Dates: start: 201107
  3. TOPROL-XL [Suspect]
     Indication: HYPERTENSION
     Dosage: UNSPECIFIED
     Route: 048
     Dates: start: 201307
  4. TOPROL-XL [Suspect]
     Indication: BLOOD PRESSURE ABNORMAL
     Dosage: UNSPECIFIED
     Route: 048
     Dates: start: 201307
  5. TOPROL-XL [Suspect]
     Indication: HYPERTENSION
     Route: 048
     Dates: start: 201307, end: 20131012
  6. TOPROL-XL [Suspect]
     Indication: BLOOD PRESSURE ABNORMAL
     Route: 048
     Dates: start: 201307, end: 20131012
  7. TOPROL-XL [Suspect]
     Indication: HYPERTENSION
     Dosage: WATSON
     Route: 048
     Dates: start: 20131013
  8. TOPROL-XL [Suspect]
     Indication: BLOOD PRESSURE ABNORMAL
     Dosage: WATSON
     Route: 048
     Dates: start: 20131013
  9. ZERTEC [Concomitant]
     Indication: MULTIPLE ALLERGIES

REACTIONS (5)
  - Blood pressure increased [Unknown]
  - Heart rate increased [Unknown]
  - Erythema [Unknown]
  - Alopecia [Unknown]
  - Drug effect incomplete [Unknown]
